FAERS Safety Report 8634878 (Version 4)
Quarter: 2012Q4

REPORT INFORMATION
  Report Type: Report from Study
  Country: US (occurrence: US)
  Receive Date: 20120626
  Receipt Date: 20121221
  Transmission Date: 20130627
  Serious: Yes (Death)
  Sender: FDA-Public Use
  Company Number: US-PFIZER INC-2012148574

PATIENT
  Age: 34 Year
  Sex: Male

DRUGS (8)
  1. LAMOTRIGINE [Suspect]
     Indication: DRUG USE FOR UNKNOWN INDICATION
     Dosage: UNK
  2. MORPHINE SULFATE [Suspect]
     Indication: DRUG USE FOR UNKNOWN INDICATION
     Dosage: UNK
  3. PREGABALIN [Suspect]
     Dosage: UNK
  4. KEPPRA [Suspect]
     Indication: DRUG USE FOR UNKNOWN INDICATION
     Dosage: UNK
  5. AMITRIPTYLINE [Suspect]
     Dosage: UNK
  6. DIPHENHYDRAMINE [Suspect]
     Dosage: UNK
  7. NORTRIPTYLINE [Suspect]
     Dosage: UNK
  8. TRAZODONE [Suspect]
     Dosage: UNK

REACTIONS (3)
  - Accidental poisoning [Fatal]
  - Accident [Fatal]
  - Toxicity to various agents [Fatal]
